FAERS Safety Report 23162933 (Version 1)
Quarter: 2023Q4

REPORT INFORMATION
  Report Type: Spontaneous
  Country: US (occurrence: None)
  Receive Date: 20231109
  Receipt Date: 20231109
  Transmission Date: 20240109
  Serious: No
  Sender: FDA-Public Use
  Company Number: US-ROCHE-3232828

PATIENT
  Age: 56 Year
  Sex: Female
  Weight: 53.572 kg

DRUGS (3)
  1. COTELLIC [Suspect]
     Active Substance: COBIMETINIB
     Indication: Metastatic malignant melanoma
     Dosage: TAKE 20 MG X 3 TABLETS EVERY PM (TOTAL 60 MG)
     Route: 048
     Dates: start: 20221122
  2. ZELBORAF [Suspect]
     Active Substance: VEMURAFENIB
     Indication: Metastatic malignant melanoma
     Dosage: 240 MG X 4 PILLS (960 MG) EVERY 12 HOURS
     Route: 048
     Dates: start: 20221122
  3. GLATOPA [Concomitant]
     Active Substance: GLATIRAMER ACETATE
     Indication: Multiple sclerosis
     Route: 058
     Dates: start: 2017

REACTIONS (3)
  - Product dose omission issue [Unknown]
  - Product packaging quantity issue [Unknown]
  - No adverse event [Unknown]

NARRATIVE: CASE EVENT DATE: 20221130
